FAERS Safety Report 7261610-X (Version None)
Quarter: 2011Q1

REPORT INFORMATION
  Report Type: 
  Country: None (occurrence: None)
  Receive Date: 20110130
  Receipt Date: 20101227
  Transmission Date: 20110831
  Serious: No
  Sender: FDA-Public Use
  Company Number: US-ABBOTT-10P-163-0682816-00

PATIENT
  Sex: Male

DRUGS (5)
  1. COUMADIN [Concomitant]
     Indication: ANTIPHOSPHOLIPID ANTIBODIES
  2. PERCOCET [Concomitant]
     Indication: PAIN
  3. HUMIRA [Suspect]
     Indication: UVEITIS
     Dates: start: 20101112
  4. HUMIRA [Suspect]
     Indication: ANKYLOSING SPONDYLITIS
     Dates: start: 20080626, end: 20101001
  5. BENICAR [Concomitant]
     Indication: HYPERTENSION

REACTIONS (3)
  - PEMPHIGOID [None]
  - ANTIBODY TEST POSITIVE [None]
  - RASH [None]
